FAERS Safety Report 10488321 (Version 1)
Quarter: 2014Q4

REPORT INFORMATION
  Report Type: Spontaneous
  Country: US (occurrence: US)
  Receive Date: 20141002
  Receipt Date: 20141002
  Transmission Date: 20150528
  Serious: Yes (Other)
  Sender: FDA-Public Use
  Company Number: US-BIOGENIDEC-2014BI100938

PATIENT
  Sex: Female

DRUGS (1)
  1. AVONEX [Suspect]
     Active Substance: INTERFERON BETA-1A
     Indication: MULTIPLE SCLEROSIS
     Route: 030
     Dates: start: 20061101

REACTIONS (5)
  - Fall [Recovered/Resolved]
  - Tibia fracture [Unknown]
  - Cell-mediated immune deficiency [Recovered/Resolved]
  - Confusional state [Not Recovered/Not Resolved]
  - Chronic sinusitis [Recovered/Resolved]
